FAERS Safety Report 12572998 (Version 1)
Quarter: 2016Q3

REPORT INFORMATION
  Report Type: Spontaneous
  Country: US (occurrence: None)
  Receive Date: 20160719
  Receipt Date: 20160719
  Transmission Date: 20161109
  Serious: No
  Sender: FDA-Public Use
  Company Number: None

PATIENT
  Age: 49 Year
  Sex: Female
  Weight: 43.09 kg

DRUGS (1)
  1. CLIPIDOGREL LB/R APOTEX CORP [Suspect]
     Active Substance: CLOPIDOGREL BISULFATE
     Indication: RASH
     Dates: start: 20160301, end: 20160410

REACTIONS (2)
  - Product substitution issue [None]
  - Rash [None]

NARRATIVE: CASE EVENT DATE: 20160411
